FAERS Safety Report 6383160-5 (Version None)
Quarter: 2009Q3

REPORT INFORMATION
  Report Type: 
  Country: None (occurrence: None)
  Receive Date: 20090930
  Receipt Date: 20090921
  Transmission Date: 20100115
  Serious: Yes (Hospitalization, Other)
  Sender: FDA-Public Use
  Company Number: US-AMGEN-QUU365763

PATIENT
  Sex: Female

DRUGS (2)
  1. ENBREL [Suspect]
     Indication: RHEUMATOID ARTHRITIS
     Route: 058
  2. METHOTREXATE [Concomitant]
     Route: 048

REACTIONS (6)
  - ARTHRALGIA [None]
  - ARTHRITIS [None]
  - FURUNCLE [None]
  - INFECTION [None]
  - MENISCUS LESION [None]
  - TYPE 2 DIABETES MELLITUS [None]
